FAERS Safety Report 7946931-7 (Version None)
Quarter: 2011Q4

REPORT INFORMATION
  Report Type: 
  Country: None (occurrence: None)
  Receive Date: 20111129
  Receipt Date: 20111124
  Transmission Date: 20120403
  Serious: Yes (Life-Threatening)
  Sender: FDA-Public Use
  Company Number: IT-ASTRAZENECA-2011SE62729

PATIENT
  Age: 8022 Day
  Sex: Male

DRUGS (5)
  1. DEPAKENE [Suspect]
     Indication: SUICIDAL BEHAVIOUR
     Route: 048
     Dates: start: 20110907, end: 20110907
  2. FLURAZEPAM HYDROCHLORIDE [Suspect]
     Indication: SUICIDAL BEHAVIOUR
     Route: 048
     Dates: start: 20110907, end: 20110907
  3. ABILIFY [Suspect]
     Indication: SUICIDAL BEHAVIOUR
     Route: 048
     Dates: start: 20110907, end: 20110907
  4. SEROQUEL [Suspect]
     Indication: SUICIDAL BEHAVIOUR
     Route: 048
     Dates: start: 20110907, end: 20110907
  5. LORAZEPAM [Suspect]
     Indication: SUICIDAL BEHAVIOUR
     Route: 048
     Dates: start: 20110907, end: 20110907

REACTIONS (2)
  - COMA [None]
  - MULTIPLE DRUG OVERDOSE [None]
